FAERS Safety Report 6074638-2 (Version None)
Quarter: 2009Q1

REPORT INFORMATION
  Report Type: 
  Country: None (occurrence: None)
  Receive Date: 20090209
  Receipt Date: 20090209
  Transmission Date: 20090719
  Serious: No
  Sender: FDA-Public Use
  Company Number: None

PATIENT
  Age: 25 Year
  Sex: Female
  Weight: 65.7716 kg

DRUGS (9)
  1. ZYPREXA [Suspect]
     Indication: PSYCHOTIC DISORDER
     Dosage: 50 MG 1 PO
     Route: 048
     Dates: start: 20080830, end: 20090206
  2. CYMBALTA [Suspect]
     Dosage: 20 MG 2 PO
     Route: 048
     Dates: start: 20080830, end: 20090206
  3. TRAZODONE HCL [Concomitant]
  4. SEROQUEL [Concomitant]
  5. VISTARIL [Concomitant]
  6. AMBIEN [Concomitant]
  7. THORAZINE [Concomitant]
  8. METAMUCIL [Concomitant]
  9. MULTI VIT [Concomitant]

REACTIONS (1)
  - INTENTIONAL SELF-INJURY [None]
